FAERS Safety Report 17344440 (Version 1)
Quarter: 2020Q1

REPORT INFORMATION
  Report Type: Spontaneous
  Country: US (occurrence: US)
  Receive Date: 20200129
  Receipt Date: 20200129
  Transmission Date: 20200409
  Serious: No
  Sender: FDA-Public Use
  Company Number: US-ALLERGAN-1940468US

PATIENT
  Sex: Female

DRUGS (1)
  1. BOTOX [Suspect]
     Active Substance: ONABOTULINUMTOXINA
     Indication: TEMPOROMANDIBULAR JOINT SYNDROME
     Dosage: UNK UNK, SINGLE
     Route: 065
     Dates: start: 20190823, end: 20190823

REACTIONS (3)
  - Speech disorder [Not Recovered/Not Resolved]
  - Facial paresis [Not Recovered/Not Resolved]
  - Off label use [Unknown]

NARRATIVE: CASE EVENT DATE: 20190823
